FAERS Safety Report 5016446-7 (Version None)
Quarter: 2006Q2

REPORT INFORMATION
  Report Type: 
  Country: None (occurrence: None)
  Receive Date: 20060531
  Receipt Date: 20060531
  Transmission Date: 20061013
  Serious: Yes (Other)
  Sender: FDA-Public Use
  Company Number: None

PATIENT
  Age: 15 Year
  Sex: Female
  Weight: 65.7716 kg

DRUGS (1)
  1. OMNICEF [Suspect]
     Indication: SINUSITIS BACTERIAL
     Dosage: TWO TIMES PER DAY PO
     Route: 048
     Dates: start: 20060425, end: 20060512

REACTIONS (17)
  - ACTIVITIES OF DAILY LIVING IMPAIRED [None]
  - ARTHRALGIA [None]
  - DIFFICULTY IN WALKING [None]
  - DYSGRAPHIA [None]
  - FATIGUE [None]
  - HEADACHE [None]
  - HYPERAESTHESIA [None]
  - INFECTIOUS MONONUCLEOSIS [None]
  - MOBILITY DECREASED [None]
  - MYALGIA [None]
  - OCULAR HYPERAEMIA [None]
  - OEDEMA PERIPHERAL [None]
  - PAIN [None]
  - PAIN IN EXTREMITY [None]
  - PYREXIA [None]
  - SUNBURN [None]
  - WHITE BLOOD CELL COUNT DECREASED [None]
